FAERS Safety Report 9618993 (Version 1)
Quarter: 2013Q4

REPORT INFORMATION
  Report Type: Spontaneous
  Country: FR (occurrence: FR)
  Receive Date: 20131014
  Receipt Date: 20131014
  Transmission Date: 20140711
  Serious: Yes (Hospitalization, Other)
  Sender: FDA-Public Use
  Company Number: FR-PFIZER INC-2013292820

PATIENT
  Age: 81 Year
  Sex: Female

DRUGS (6)
  1. CORDARONE [Suspect]
     Dosage: 200 MG (ONE DOSE FORM), DAILY
     Route: 048
     Dates: start: 20121220, end: 20130622
  2. CARDENSIEL [Suspect]
     Dosage: 5 MG (ONE DOSE FORM), DAILY
     Route: 048
     Dates: start: 201203, end: 20130622
  3. HEMIGOXINE NATIVELLE [Suspect]
     Dosage: 0.125 MG (ONE DOSE FORM), DAILY
     Route: 048
     Dates: start: 201203, end: 20130622
  4. PREVISCAN [Concomitant]
     Dosage: UNK
  5. LASILIX [Concomitant]
     Dosage: UNK
  6. DIFFU K [Concomitant]
     Dosage: UNK

REACTIONS (7)
  - Confusional state [Recovered/Resolved]
  - Bradycardia [Recovered/Resolved with Sequelae]
  - Atrioventricular block complete [Recovered/Resolved with Sequelae]
  - Erysipelas [Recovering/Resolving]
  - Endocarditis [Unknown]
  - Overdose [Recovering/Resolving]
  - Hypokalaemia [Unknown]
